FAERS Safety Report 21001977 (Version 3)
Quarter: 2022Q3

REPORT INFORMATION
  Report Type: Report from Study
  Country: IT (occurrence: IT)
  Receive Date: 20220624
  Receipt Date: 20220712
  Transmission Date: 20221026
  Serious: Yes (Other)
  Sender: FDA-Public Use
  Company Number: IT-CELLTRION INC.-2022IT009483

PATIENT

DRUGS (16)
  1. RITUXIMAB [Suspect]
     Active Substance: RITUXIMAB
     Indication: Diffuse large B-cell lymphoma
     Dosage: 829MG/M2 EVERY 3 WEEKS (ON 17/AUG/2020 AT 11:49 AM, SHE RECEIVED THE MOST RECENT DOSE OF RITUXIMAB (
     Route: 042
     Dates: start: 20200506
  2. CYCLOPHOSPHAMIDE [Suspect]
     Active Substance: CYCLOPHOSPHAMIDE
     Indication: Diffuse large B-cell lymphoma
     Dosage: 1350 MG/M2 EVERY 3 WEEKS (ON 17/AUG/2020 AT 3:28 PM, SHE RECEIVED THE MOST RECENT DOSE OF CYCLOPHOSP
     Route: 042
     Dates: start: 20200416
  3. PREDNISONE [Suspect]
     Active Substance: PREDNISONE
     Indication: Diffuse large B-cell lymphoma
     Dosage: 100MG; ON 21/AUG/2020, SHE RECEIVED THE MOST RECENT DOSE OF PREDNISONE (100 MG) PRIOR TO AE ONSET
     Route: 048
     Dates: start: 20200417
  4. VINCRISTINE [Suspect]
     Active Substance: VINCRISTINE
     Indication: Diffuse large B-cell lymphoma
     Dosage: 2 MG/M2 EVERY 3 WEEKS, ON 17/AUG/2020 AT 3:10 PM, SHE RECEIVED THE MOST RECENT DOSE OF VINCRISTINE (
     Route: 042
     Dates: start: 20200416
  5. DOXORUBICIN [Suspect]
     Active Substance: DOXORUBICIN
     Indication: Diffuse large B-cell lymphoma
     Dosage: 90 MG/M2 EVERY 3 WEEKS, ON 17/AUG/2020 AT 3:20 PM, SHE RECEIVED THE MOST RECENT DOSE OF DOXORUBICIN
     Route: 042
     Dates: start: 20200416
  6. DOXORUBICIN [Suspect]
     Active Substance: DOXORUBICIN
     Dosage: 90 MG/M2 EVERY 3 WEEKS, ON 17/AUG/2020 AT 3:20 PM, SHE RECEIVED THE MOST RECENT DOSE OF DOXORUBICIN
     Route: 042
     Dates: start: 20200416
  7. METHYLPREDNISOLONE [Suspect]
     Active Substance: METHYLPREDNISOLONE
     Indication: Diffuse large B-cell lymphoma
     Dosage: 100 MG, ON 17/AUG/2020, SHE RECEIVED THE MOST RECENT DOSE OF METHYLPREDNISOLONE (80 MG) PRIOR TO AE
     Route: 048
     Dates: start: 20200416
  8. METHYLPREDNISOLONE [Concomitant]
     Active Substance: METHYLPREDNISOLONE
     Dosage: 80 MG
     Route: 042
     Dates: start: 20210427, end: 20210427
  9. ACETAMINOPHEN [Concomitant]
     Active Substance: ACETAMINOPHEN
     Dosage: 1000 MG
     Route: 048
     Dates: start: 20210427, end: 20210427
  10. GRANISETRON [Concomitant]
     Active Substance: GRANISETRON
     Dosage: NO
     Route: 042
     Dates: start: 20210427, end: 20210427
  11. ACYCLOVIR [Concomitant]
     Active Substance: ACYCLOVIR
     Dosage: UNK
     Dates: start: 20200331
  12. CHLORPHENIRAMINE MALEATE [Concomitant]
     Active Substance: CHLORPHENIRAMINE MALEATE
     Dosage: 10 MG
     Route: 042
     Dates: start: 20210427, end: 20210427
  13. OMEPRAZOLE [Concomitant]
     Active Substance: OMEPRAZOLE
     Dosage: UNK
     Dates: start: 20210111
  14. GLOFITAMAB [Concomitant]
     Active Substance: GLOFITAMAB
     Indication: Diffuse large B-cell lymphoma
     Dosage: 2.5 MG EVERY 3 WEEKS, ON 16/FEB/2021 AT 11:48 AM, SHE RECEIVED THE MOST RECENT DOSE OF GLOFITAMAB (1
     Route: 042
     Dates: start: 20200513
  15. BACTRIM [Concomitant]
     Active Substance: SULFAMETHOXAZOLE\TRIMETHOPRIM
     Dosage: UNK
     Dates: start: 20200331
  16. OBINUTUZUMAB [Concomitant]
     Active Substance: OBINUTUZUMAB
     Indication: Diffuse large B-cell lymphoma
     Dosage: 1000 MILLIGRAM, ON 16/APR/2020 AT 9:29 AM, SHE RECEIVED THE MOST RECENT DOSE OF OBINUTUZUMAB (1000 M
     Route: 042
     Dates: start: 20200416

REACTIONS (2)
  - Neutropenia [Recovered/Resolved]
  - Overdose [Unknown]

NARRATIVE: CASE EVENT DATE: 20210420
